FAERS Safety Report 4874572-7 (Version None)
Quarter: 2006Q1

REPORT INFORMATION
  Report Type: 
  Country: None (occurrence: None)
  Receive Date: 20060106
  Receipt Date: 20051221
  Transmission Date: 20060701
  Serious: Yes (Death, Hospitalization, Disabling)
  Sender: FDA-Public Use
  Company Number: US-MERCK-0512USA03741

PATIENT
  Age: 68 Year
  Sex: Female
  Weight: 50 kg

DRUGS (9)
  1. VIOXX [Suspect]
     Indication: ARTHRITIS
     Route: 048
     Dates: start: 20010401, end: 20010706
  2. PREDNISONE [Concomitant]
     Indication: ARTHRITIS
     Route: 065
  3. ARAVA [Concomitant]
     Indication: ARTHRITIS
     Route: 065
  4. MEDROL [Concomitant]
     Indication: ARTHRITIS
     Route: 065
  5. CIPRO [Concomitant]
     Indication: UPPER RESPIRATORY TRACT INFECTION
     Route: 065
  6. HUMULIN [Concomitant]
     Route: 065
  7. MIACALCIN [Concomitant]
     Route: 065
  8. ACTOS [Concomitant]
     Route: 065
  9. TUMS [Concomitant]
     Route: 065

REACTIONS (34)
  - ANAEMIA HAEMOLYTIC AUTOIMMUNE [None]
  - ANAEMIA OF CHRONIC DISEASE [None]
  - ATRIAL FIBRILLATION [None]
  - BONE DISORDER [None]
  - CARDIOMEGALY [None]
  - CEREBROVASCULAR ACCIDENT [None]
  - CHRONIC OBSTRUCTIVE PULMONARY DISEASE [None]
  - CORONARY ARTERY DISEASE [None]
  - DEATH [None]
  - DEEP VEIN THROMBOSIS [None]
  - DEHYDRATION [None]
  - DEMENTIA ALZHEIMER'S TYPE [None]
  - DEPRESSION [None]
  - DIABETES MELLITUS [None]
  - DIARRHOEA [None]
  - EJECTION FRACTION DECREASED [None]
  - GLUCOSE TOLERANCE IMPAIRED [None]
  - HIP FRACTURE [None]
  - HYPERTENSION [None]
  - HYPOKALAEMIA [None]
  - INAPPROPRIATE ANTIDIURETIC HORMONE SECRETION [None]
  - LUNG ABSCESS [None]
  - MALNUTRITION [None]
  - MENTAL STATUS CHANGES [None]
  - MONONEUROPATHY MULTIPLEX [None]
  - NEUROPATHY PERIPHERAL [None]
  - ORAL CANDIDIASIS [None]
  - PNEUMONIA [None]
  - PNEUMONIA NECROTISING [None]
  - PULMONARY ARTERY THROMBOSIS [None]
  - RENAL FAILURE [None]
  - SKIN CANDIDA [None]
  - SKIN LACERATION [None]
  - WEIGHT DECREASED [None]
